FAERS Safety Report 15256532 (Version 1)
Quarter: 2018Q3

REPORT INFORMATION
  Report Type: Report from Study
  Country: US (occurrence: US)
  Receive Date: 20180808
  Receipt Date: 20180808
  Transmission Date: 20181010
  Serious: Yes (Other)
  Sender: FDA-Public Use
  Company Number: US-GILEAD-2018-0353025

PATIENT
  Age: 79 Year
  Sex: Female

DRUGS (7)
  1. SALAGEN [Suspect]
     Active Substance: PILOCARPINE HYDROCHLORIDE
     Indication: DRY EYE
  2. IDELALISIB [Suspect]
     Active Substance: IDELALISIB
     Indication: CHRONIC LYMPHOCYTIC LEUKAEMIA
     Dosage: 150 MG, BID
     Route: 048
     Dates: start: 20180531
  3. VITAMIN D [Concomitant]
     Active Substance: CHOLECALCIFEROL
     Indication: NUTRITIONAL SUPPLEMENTATION
     Dosage: NOT PROVIDED, 2 TABLETS DAILY
     Dates: start: 20180704
  4. SALAGEN [Suspect]
     Active Substance: PILOCARPINE HYDROCHLORIDE
     Indication: DRY MOUTH
     Dosage: 5 MG, TID
     Route: 048
  5. SALAGEN [Suspect]
     Active Substance: PILOCARPINE HYDROCHLORIDE
     Indication: DRY SKIN
  6. VITAMIN B12 [Concomitant]
     Active Substance: CYANOCOBALAMIN
     Indication: VITAMIN B12 DECREASED
     Dosage: UNK, Q1MONTH
     Dates: start: 201601
  7. TUMERIC [Concomitant]
     Active Substance: HERBALS\TURMERIC
     Indication: NUTRITIONAL SUPPLEMENTATION
     Dosage: 1 DF, QD, PRN
     Route: 048

REACTIONS (20)
  - Decreased appetite [Not Recovered/Not Resolved]
  - Product use issue [Unknown]
  - Tooth extraction [Unknown]
  - Fall [Recovering/Resolving]
  - Tooth fracture [Recovering/Resolving]
  - Gingival swelling [Not Recovered/Not Resolved]
  - Mastication disorder [Not Recovered/Not Resolved]
  - Asthenia [Not Recovered/Not Resolved]
  - Gait disturbance [Not Recovered/Not Resolved]
  - Rash pruritic [Recovered/Resolved]
  - Blood test abnormal [Not Recovered/Not Resolved]
  - Rash [Recovering/Resolving]
  - Loose tooth [Recovering/Resolving]
  - Malaria [Not Recovered/Not Resolved]
  - Loss of personal independence in daily activities [Not Recovered/Not Resolved]
  - Gingival pain [Not Recovered/Not Resolved]
  - Myocardial infarction [Unknown]
  - Laceration [Recovering/Resolving]
  - Fall [Not Recovered/Not Resolved]
  - Diarrhoea [Recovered/Resolved]

NARRATIVE: CASE EVENT DATE: 201806
